FAERS Safety Report 17144937 (Version 1)
Quarter: 2019Q4

REPORT INFORMATION
  Report Type: Spontaneous
  Country: US (occurrence: US)
  Receive Date: 20191212
  Receipt Date: 20191212
  Transmission Date: 20200122
  Serious: No
  Sender: FDA-Public Use
  Company Number: US-NOVEN PHARMACEUTICALS, INC.-US2019000609

PATIENT

DRUGS (3)
  1. ESTRADIOL(GP) [Suspect]
     Active Substance: ESTRADIOL
     Indication: HOT FLUSH
     Dosage: 0.025 MG, UNKNOWN
     Route: 062
     Dates: start: 201905
  2. ESTRADIOL(GP) [Suspect]
     Active Substance: ESTRADIOL
     Indication: NIGHT SWEATS
  3. VERTEX [Concomitant]

REACTIONS (1)
  - Hot flush [Not Recovered/Not Resolved]

NARRATIVE: CASE EVENT DATE: 2019
